FAERS Safety Report 23842450 (Version 2)
Quarter: 2024Q2

REPORT INFORMATION
  Report Type: Spontaneous
  Country: US (occurrence: US)
  Receive Date: 20240510
  Receipt Date: 20240517
  Transmission Date: 20240716
  Serious: No
  Sender: FDA-Public Use
  Company Number: US-BAYER-2024A064005

PATIENT
  Age: 2 Decade
  Sex: Female

DRUGS (8)
  1. MOXIFLOXACIN [Suspect]
     Active Substance: MOXIFLOXACIN
     Dosage: 400 MG, QD
     Route: 042
  2. RIFAMPIN [Concomitant]
     Active Substance: RIFAMPIN
  3. ISONIAZID [Concomitant]
     Active Substance: ISONIAZID
  4. PYRAZINAMIDE [Concomitant]
     Active Substance: PYRAZINAMIDE
  5. ETHAMBUTOL [Concomitant]
     Active Substance: ETHAMBUTOL HYDROCHLORIDE
  6. AMIKACIN [Concomitant]
     Active Substance: AMIKACIN
     Dosage: 15 MG/KG, QD
     Route: 042
  7. LINEZOLID [Concomitant]
     Active Substance: LINEZOLID
     Dosage: 600 MG, BID
  8. CYCLOSERINE [Concomitant]
     Active Substance: CYCLOSERINE
     Dosage: 250 MG, BID

REACTIONS (1)
  - Off label use [None]
